FAERS Safety Report 16912877 (Version 2)
Quarter: 2019Q4

REPORT INFORMATION
  Report Type: Spontaneous
  Country: US (occurrence: US)
  Receive Date: 20191014
  Receipt Date: 20191022
  Transmission Date: 20200122
  Serious: Yes (Life-Threatening, Hospitalization, Other)
  Sender: FDA-Public Use
  Company Number: US-LUPIN PHARMACEUTICALS INC.-2019-06487

PATIENT
  Age: 45 Year
  Sex: Male

DRUGS (1)
  1. AMLODIPINE [Suspect]
     Active Substance: AMLODIPINE BESYLATE
     Indication: SUICIDE ATTEMPT
     Dosage: UNK
     Route: 048

REACTIONS (6)
  - Toxicity to various agents [Unknown]
  - Hypotension [Recovered/Resolved]
  - Suicide attempt [Unknown]
  - Blood creatinine increased [Recovered/Resolved]
  - Lethargy [Recovered/Resolved]
  - Intentional overdose [Unknown]
